FAERS Safety Report 13633404 (Version 1)
Quarter: 2017Q2

REPORT INFORMATION
  Report Type: Spontaneous
  Country: US (occurrence: US)
  Receive Date: 20170609
  Receipt Date: 20170609
  Transmission Date: 20170830
  Serious: Yes (Other)
  Sender: FDA-Public Use
  Company Number: US-ROCHE-1942548

PATIENT
  Age: 52 Year
  Sex: Male

DRUGS (2)
  1. TECENTRIQ [Suspect]
     Active Substance: ATEZOLIZUMAB
     Indication: BLADDER CANCER
     Route: 065
  2. ATIVAN [Concomitant]
     Active Substance: LORAZEPAM

REACTIONS (2)
  - Loss of consciousness [Unknown]
  - Pyrexia [Unknown]
